FAERS Safety Report 14375393 (Version 1)
Quarter: 2018Q1

REPORT INFORMATION
  Report Type: Spontaneous
  Country: US (occurrence: US)
  Receive Date: 20180110
  Receipt Date: 20180110
  Transmission Date: 20180509
  Serious: Yes (Life-Threatening)
  Sender: FDA-Public Use
  Company Number: None

PATIENT
  Age: 87 Year
  Sex: Male
  Weight: 70.31 kg

DRUGS (3)
  1. VITAMIN D3 [Concomitant]
     Active Substance: CHOLECALCIFEROL
  2. FINASTERIDE. [Concomitant]
     Active Substance: FINASTERIDE
  3. V.R. ATORVASTATIN CALCIUM 50MG [Suspect]
     Active Substance: ATORVASTATIN CALCIUM
     Indication: PRODUCT USED FOR UNKNOWN INDICATION
     Route: 048
     Dates: start: 20171004, end: 20171214

REACTIONS (6)
  - Confusional state [None]
  - Presyncope [None]
  - Amnesia [None]
  - Therapy cessation [None]
  - Cardiac disorder [None]
  - Dyspnoea [None]

NARRATIVE: CASE EVENT DATE: 20171213
